FAERS Safety Report 16865838 (Version 1)
Quarter: 2019Q3

REPORT INFORMATION
  Report Type: Spontaneous
  Country: US (occurrence: US)
  Receive Date: 20190930
  Receipt Date: 20190930
  Transmission Date: 20191005
  Serious: No
  Sender: FDA-Public Use
  Company Number: US-ALLERGAN-1846621US

PATIENT
  Age: 15 Year
  Sex: Male

DRUGS (2)
  1. VRAYLAR [Suspect]
     Active Substance: CARIPRAZINE
     Indication: DEPRESSION
  2. VRAYLAR [Suspect]
     Active Substance: CARIPRAZINE
     Indication: ATTENTION DEFICIT/HYPERACTIVITY DISORDER
     Dosage: SMALLEST DOSE, REPORTER THOUGH IT WAS 1.5 MG QD
     Route: 065
     Dates: start: 20180919

REACTIONS (2)
  - Therapeutic response unexpected [Unknown]
  - Off label use [Unknown]
